FAERS Safety Report 11983182 (Version 1)
Quarter: 2016Q1

REPORT INFORMATION
  Report Type: Spontaneous
  Country: PT (occurrence: PT)
  Receive Date: 20160201
  Receipt Date: 20160201
  Transmission Date: 20160526
  Serious: Yes (Other)
  Sender: FDA-Public Use
  Company Number: PT-BAYER-2016-016192

PATIENT
  Age: 43 Year
  Sex: Female

DRUGS (2)
  1. ULTRAVIST [Suspect]
     Active Substance: IOPROMIDE
     Indication: DIAGNOSTIC PROCEDURE
     Dosage: 1 DF, QD, 95 ML ADMINISTERED AT 2.5 ML/SECOND
     Route: 040
     Dates: start: 20151030, end: 20151030
  2. SALINE ORAL OTC [Concomitant]
     Active Substance: SODIUM CHLORIDE
     Dosage: 40 ML, UNK

REACTIONS (3)
  - Erythema [Recovered/Resolved]
  - Eye oedema [Recovered/Resolved]
  - Ocular hyperaemia [Recovered/Resolved]

NARRATIVE: CASE EVENT DATE: 20151030
